FAERS Safety Report 5150016-5 (Version None)
Quarter: 2006Q4

REPORT INFORMATION
  Report Type: 
  Country: None (occurrence: None)
  Receive Date: 20061108
  Receipt Date: 20061026
  Transmission Date: 20070319
  Serious: Yes (Hospitalization)
  Sender: FDA-Public Use
  Company Number: 2006US002295

PATIENT
  Age: 66 Year
  Sex: Male
  Weight: 89.3 kg

DRUGS (1)
  1. AMEVIVE [Suspect]
     Indication: PSORIASIS
     Dosage: 15 MG, WEEKLY, INTRAMUSCULAR
     Route: 030
     Dates: start: 20050826

REACTIONS (8)
  - BLOOD ALKALINE PHOSPHATASE ABNORMAL [None]
  - BLOOD DISORDER [None]
  - BLOOD GLUCOSE INCREASED [None]
  - CELLULITIS [None]
  - LIVER FUNCTION TEST ABNORMAL [None]
  - SEPTIC ARTHRITIS STAPHYLOCOCCAL [None]
  - STAPHYLOCOCCAL BACTERAEMIA [None]
  - STRESS [None]
